FAERS Safety Report 8128636-5 (Version None)
Quarter: 2012Q1

REPORT INFORMATION
  Report Type: 
  Country: None (occurrence: None)
  Receive Date: 20120210
  Receipt Date: 20120131
  Transmission Date: 20120608
  Serious: Yes (Hospitalization)
  Sender: FDA-Public Use
  Company Number: DE-JNJFOC-20120113644

PATIENT
  Age: 55 Year
  Sex: Female

DRUGS (8)
  1. METHOTREXATE [Concomitant]
     Indication: RHEUMATOID ARTHRITIS
     Dates: start: 20090901
  2. METHOTREXATE [Concomitant]
     Dates: start: 20100401
  3. METHOTREXATE [Concomitant]
     Dates: start: 20101001
  4. SULFASALAZINE [Concomitant]
     Dates: start: 20110125
  5. METHOTREXATE [Concomitant]
     Dates: start: 20110701
  6. METHOTREXATE [Concomitant]
     Dates: start: 20090601
  7. GOLIMUMAB [Suspect]
     Indication: RHEUMATOID ARTHRITIS
     Route: 058
     Dates: start: 20101001, end: 20110701
  8. SULFASALAZINE [Concomitant]
     Indication: RHEUMATOID ARTHRITIS
     Dates: start: 20100607

REACTIONS (2)
  - LYMPHOEDEMA [None]
  - INTERVERTEBRAL DISC PROTRUSION [None]
